FAERS Safety Report 15410745 (Version 3)
Quarter: 2019Q1

REPORT INFORMATION
  Report Type: Report from Study
  Country: None (occurrence: IL)
  Receive Date: 20180921
  Receipt Date: 20190106
  Transmission Date: 20190417
  Serious: Yes (Hospitalization, Other)
  Sender: FDA-Public Use
  Company Number: IL-ABBVIE-18K-082-2488700-00

PATIENT
  Sex: Male

DRUGS (3)
  1. HUMIRA [Suspect]
     Active Substance: ADALIMUMAB
     Indication: CROHN^S DISEASE
     Route: 058
     Dates: start: 20180806, end: 20180806
  2. PREDNISONE. [Concomitant]
     Active Substance: PREDNISONE
     Indication: PRODUCT USED FOR UNKNOWN INDICATION
  3. HUMIRA [Suspect]
     Active Substance: ADALIMUMAB
     Route: 058
     Dates: start: 20190101, end: 20190101

REACTIONS (14)
  - Intestinal perforation [Recovered/Resolved]
  - Abdominal adhesions [Recovering/Resolving]
  - Abdominal mass [Recovering/Resolving]
  - Tachycardia [Unknown]
  - Appendix disorder [Recovering/Resolving]
  - Gastrointestinal wall thickening [Recovering/Resolving]
  - Intestinal congestion [Recovering/Resolving]
  - Flatulence [Recovering/Resolving]
  - Skin lesion [Recovered/Resolved]
  - Intestinal sepsis [Recovering/Resolving]
  - Abdominal distension [Recovering/Resolving]
  - Haematochezia [Not Recovered/Not Resolved]
  - Vomiting [Recovering/Resolving]
  - Peritonitis [Recovering/Resolving]

NARRATIVE: CASE EVENT DATE: 2018
